FAERS Safety Report 17840319 (Version 3)
Quarter: 2020Q2

REPORT INFORMATION
  Report Type: Spontaneous
  Country: US (occurrence: US)
  Receive Date: 20200529
  Receipt Date: 20200615
  Transmission Date: 20200714
  Serious: No
  Sender: FDA-Public Use
  Company Number: NVSC2020US148238

PATIENT
  Sex: Male

DRUGS (3)
  1. LENVIMA [Suspect]
     Active Substance: LENVATINIB
     Indication: BRAIN NEOPLASM MALIGNANT
     Dosage: 24 MG, QD
     Route: 048
  2. AFINITOR [Suspect]
     Active Substance: EVEROLIMUS
     Indication: BRAIN NEOPLASM MALIGNANT
     Dosage: UNK
     Route: 065
  3. LENVIMA [Suspect]
     Active Substance: LENVATINIB
     Dosage: 10 MG
     Route: 048

REACTIONS (3)
  - Memory impairment [Not Recovered/Not Resolved]
  - Constipation [Not Recovered/Not Resolved]
  - Product use in unapproved indication [Not Recovered/Not Resolved]
